FAERS Safety Report 12621482 (Version 1)
Quarter: 2016Q3

REPORT INFORMATION
  Report Type: Report from Study
  Country: US (occurrence: US)
  Receive Date: 20160804
  Receipt Date: 20160804
  Transmission Date: 20161109
  Serious: Yes (Hospitalization, Other)
  Sender: FDA-Public Use
  Company Number: US-GILEAD-2016-0226283

PATIENT
  Age: 74 Year
  Sex: Female

DRUGS (9)
  1. OMEPRAZOLE. [Concomitant]
     Active Substance: OMEPRAZOLE
  2. WARFARIN [Concomitant]
     Active Substance: WARFARIN
  3. FUROSEMIDE. [Concomitant]
     Active Substance: FUROSEMIDE
  4. SERTRALINE [Concomitant]
     Active Substance: SERTRALINE HYDROCHLORIDE
  5. POTASSIUM ACETATE. [Concomitant]
     Active Substance: POTASSIUM ACETATE
  6. AMBRISENTAN [Suspect]
     Active Substance: AMBRISENTAN
     Indication: PULMONARY HYPERTENSION
     Dosage: 5 MG, QD
     Route: 065
     Dates: start: 20140702
  7. METOPROLOL. [Concomitant]
     Active Substance: METOPROLOL
  8. ALLOPURINOL. [Concomitant]
     Active Substance: ALLOPURINOL
  9. LOSARTAN. [Concomitant]
     Active Substance: LOSARTAN

REACTIONS (6)
  - Nausea [Not Recovered/Not Resolved]
  - Syncope [Recovered/Resolved]
  - Fall [Unknown]
  - Dizziness [Not Recovered/Not Resolved]
  - Oxygen saturation decreased [Not Recovered/Not Resolved]
  - Anaemia [Not Recovered/Not Resolved]

NARRATIVE: CASE EVENT DATE: 201607
